FAERS Safety Report 6649636-8 (Version None)
Quarter: 2010Q1

REPORT INFORMATION
  Report Type: 
  Country: None (occurrence: None)
  Receive Date: 20100324
  Receipt Date: 20091014
  Transmission Date: 20100710
  Serious: No
  Sender: FDA-Public Use
  Company Number: US-AMGEN-KDL369272

PATIENT
  Sex: Male

DRUGS (13)
  1. NEUPOGEN [Suspect]
     Indication: CHEMOTHERAPY
  2. NEULASTA [Suspect]
     Indication: CHEMOTHERAPY
  3. BENICAR [Concomitant]
  4. CLONAZEPAM [Concomitant]
  5. LEXAPRO [Concomitant]
  6. FUROSEMIDE [Concomitant]
  7. FLOMAX [Concomitant]
  8. METOPROLOL [Concomitant]
  9. AVODART [Concomitant]
  10. POTASSIUM CHLORIDE [Concomitant]
  11. VITAMIN TAB [Concomitant]
  12. MAALOX [Concomitant]
  13. IMODIUM [Concomitant]

REACTIONS (3)
  - BLOOD COUNT ABNORMAL [None]
  - INJECTION SITE HAEMORRHAGE [None]
  - INJECTION SITE PAIN [None]
